FAERS Safety Report 15881964 (Version 1)
Quarter: 2019Q1

REPORT INFORMATION
  Report Type: Spontaneous
  Country: US (occurrence: US)
  Receive Date: 20190128
  Receipt Date: 20190128
  Transmission Date: 20190417
  Serious: No
  Sender: FDA-Public Use
  Company Number: US-TARO-2018TAR00615

PATIENT
  Sex: Female
  Weight: 51.25 kg

DRUGS (1)
  1. KETOCONAZOLE CREAM 2% [Suspect]
     Active Substance: KETOCONAZOLE
     Indication: FUNGAL INFECTION
     Dosage: APPLY SPARINGLY TO SOLES OF FEET AND TOENAILS, 1X/DAY AT BEDTIME
     Route: 061
     Dates: start: 2018

REACTIONS (3)
  - Product administered at inappropriate site [Not Recovered/Not Resolved]
  - Application site erythema [Not Recovered/Not Resolved]
  - Off label use [Not Recovered/Not Resolved]

NARRATIVE: CASE EVENT DATE: 2018
